FAERS Safety Report 21577426 (Version 1)
Quarter: 2022Q4

REPORT INFORMATION
  Report Type: Spontaneous
  Country: US (occurrence: None)
  Receive Date: 20221109
  Receipt Date: 20221109
  Transmission Date: 20230113
  Serious: Yes (Disabling)
  Sender: FDA-Public Use
  Company Number: None

PATIENT
  Age: 71 Year
  Sex: Female
  Weight: 86.18 kg

DRUGS (1)
  1. BRIMONIDINE TARTRATE [Suspect]
     Active Substance: BRIMONIDINE TARTRATE

REACTIONS (6)
  - Somnolence [None]
  - Abdominal discomfort [None]
  - Impaired driving ability [None]
  - Loss of personal independence in daily activities [None]
  - Therapeutic product effect decreased [None]
  - Blindness unilateral [None]

NARRATIVE: CASE EVENT DATE: 20200818
